FAERS Safety Report 4635126-0 (Version None)
Quarter: 2005Q2

REPORT INFORMATION
  Report Type: 
  Country: None (occurrence: None)
  Receive Date: 20050414
  Receipt Date: 20050401
  Transmission Date: 20051028
  Serious: Yes (Hospitalization)
  Sender: FDA-Public Use
  Company Number: US-GLAXOSMITHKLINE-A0552443A

PATIENT
  Age: 48 Year
  Sex: Female

DRUGS (3)
  1. NICORETTE [Suspect]
     Route: 002
     Dates: start: 19990101
  2. NICORETTE [Suspect]
     Route: 002
  3. EXCEDRIN (MIGRAINE) [Concomitant]
     Route: 048
     Dates: start: 20000101

REACTIONS (5)
  - DRUG ABUSER [None]
  - INTENTIONAL MISUSE [None]
  - OVERDOSE [None]
  - PANIC ATTACK [None]
  - SENSORY DISTURBANCE [None]
